FAERS Safety Report 10109750 (Version 1)
Quarter: 2014Q2

REPORT INFORMATION
  Report Type: Spontaneous
  Country: IT (occurrence: None)
  Receive Date: 20140423
  Receipt Date: 20140423
  Transmission Date: 20141212
  Serious: Yes (Other)
  Sender: FDA-Public Use
  Company Number: 7283469

PATIENT
  Age: 80 Year
  Sex: Male

DRUGS (8)
  1. EUTIROX [Suspect]
     Indication: DRUG ABUSE
     Dosage: (750 UG,TOTAL)
     Route: 048
     Dates: start: 20130919, end: 20130919
  2. LASIX [Suspect]
     Indication: DRUG ABUSE
     Dosage: (250 MG,TOTAL)
     Route: 048
     Dates: start: 20130919, end: 20130919
  3. TOTALIP [Suspect]
     Indication: DRUG ABUSE
     Dosage: (200 MG,TOTAL)
     Route: 048
     Dates: start: 20130919, end: 20130919
  4. TRIATEC [Suspect]
     Indication: DRUG ABUSE
     Dosage: (37.5 MG,TOTAL)
     Route: 048
     Dates: start: 20130919, end: 20130919
  5. AXAGON [Suspect]
     Indication: DRUG ABUSE
     Dosage: (400 MG,TOTAL)
     Route: 048
     Dates: start: 20130919, end: 20130919
  6. TOLEP [Suspect]
     Indication: DRUG ABUSE
     Dosage: (6 GM,TOTAL)
     Route: 048
     Dates: start: 20130919, end: 20130919
  7. TIKLID (TICLOPIDINE HYDROCHLORIDE) (250 MG) (TICLOPIDINE HYDROCHLORIDE) [Concomitant]
  8. BISOPROLOL FUMARATE (BISOPROLOL FUMARATE) (2.5 MG) (BISOPROLOL FUMARATE) [Concomitant]

REACTIONS (5)
  - Fall [None]
  - Injury [None]
  - Intentional self-injury [None]
  - Asthenia [None]
  - Depressed mood [None]
